FAERS Safety Report 14793925 (Version 2)
Quarter: 2018Q2

REPORT INFORMATION
  Report Type: Report from Study
  Country: US (occurrence: US)
  Receive Date: 20180423
  Receipt Date: 20180522
  Transmission Date: 20180711
  Serious: Yes (Hospitalization, Disabling, Other)
  Sender: FDA-Public Use
  Company Number: US-B.I. PHARMACEUTICALS,INC./RIDGEFIELD-2017-BI-032484

PATIENT
  Sex: Male

DRUGS (2)
  1. OFEV [Suspect]
     Active Substance: NINTEDANIB
     Indication: IDIOPATHIC PULMONARY FIBROSIS
     Dosage: 12 HOURS APART WITH FOOD
     Route: 048
     Dates: start: 20170404
  2. PREDNISONE. [Concomitant]
     Active Substance: PREDNISONE
     Indication: PRODUCT USED FOR UNKNOWN INDICATION
     Route: 065

REACTIONS (10)
  - Diarrhoea [Not Recovered/Not Resolved]
  - Pneumonia [Unknown]
  - Haemoptysis [Not Recovered/Not Resolved]
  - Weight decreased [Unknown]
  - Shock hypoglycaemic [Unknown]
  - Diabetes mellitus [Unknown]
  - Constipation [Unknown]
  - Constipation [Not Recovered/Not Resolved]
  - Infection [Unknown]
  - Immune system disorder [Unknown]
